FAERS Safety Report 4632432-0 (Version None)
Quarter: 2005Q2

REPORT INFORMATION
  Report Type: 
  Country: None (occurrence: None)
  Receive Date: 20050401
  Receipt Date: 20041222
  Transmission Date: 20051028
  Serious: Yes (Hospitalization)
  Sender: FDA-Public Use
  Company Number: 04P-163-0284313-00

PATIENT
  Age: 7 Year
  Sex: Male
  Weight: 53.0709 kg

DRUGS (6)
  1. DEPAKOTE [Suspect]
     Indication: PETIT MAL EPILEPSY
     Dosage: SEE IMAGE
     Route: 048
     Dates: end: 20041207
  2. DEPAKOTE [Suspect]
     Indication: PETIT MAL EPILEPSY
     Dosage: SEE IMAGE
     Route: 048
     Dates: start: 20041207, end: 20041218
  3. DEPAKOTE [Suspect]
     Indication: PETIT MAL EPILEPSY
     Dosage: SEE IMAGE
     Route: 048
     Dates: start: 20041218
  4. RESPIRDAL [Concomitant]
  5. ADERALL [Concomitant]
  6. CHLORPROMAZINE HCL [Concomitant]

REACTIONS (9)
  - ABDOMINAL PAIN UPPER [None]
  - ANAEMIA [None]
  - CONVULSION [None]
  - DIARRHOEA [None]
  - DISORIENTATION [None]
  - HALLUCINATION, AUDITORY [None]
  - HEPATIC ENZYME INCREASED [None]
  - HYPERSOMNIA [None]
  - SCREAMING [None]
